FAERS Safety Report 6940060-7 (Version None)
Quarter: 2010Q3

REPORT INFORMATION
  Report Type: 
  Country: None (occurrence: None)
  Receive Date: 20100825
  Receipt Date: 20100823
  Transmission Date: 20110219
  Serious: No
  Sender: FDA-Public Use
  Company Number: US-BAYER-201013865NA

PATIENT
  Age: 83 Year
  Sex: Male

DRUGS (1)
  1. CAMPATH [Suspect]
     Indication: APLASTIC ANAEMIA
     Dosage: TOTAL DAILY DOSE: 3 MG
     Route: 058
     Dates: start: 20100209

REACTIONS (1)
  - INJECTION SITE REACTION [None]
